FAERS Safety Report 23805655 (Version 1)
Quarter: 2024Q2

REPORT INFORMATION
  Report Type: Spontaneous
  Country: CA (occurrence: CA)
  Receive Date: 20240502
  Receipt Date: 20240502
  Transmission Date: 20240716
  Serious: No
  Sender: FDA-Public Use
  Company Number: CA-ALKEM LABORATORIES LIMITED-KR-ALKEM-2024-01962

PATIENT
  Age: 39 Year
  Sex: Male

DRUGS (2)
  1. LIDOCAINE [Suspect]
     Active Substance: LIDOCAINE
     Indication: Neck pain
     Dosage: 0.5 MILLILITER (1 PERCENT) AND MIXED WITH 0.5 ML OF NORMAL SALINE
     Route: 065
  2. DEXAMETHASONE [Suspect]
     Active Substance: DEXAMETHASONE
     Indication: Neck pain
     Dosage: 5 MILLIGRAM (INJECTION) AND MIXED WITH 0.5 ML OF NORMAL SALINE
     Route: 065

REACTIONS (1)
  - Myoclonus [Recovered/Resolved]
